FAERS Safety Report 15965107 (Version 2)
Quarter: 2019Q1

REPORT INFORMATION
  Report Type: Spontaneous
  Country: US (occurrence: US)
  Receive Date: 20190215
  Receipt Date: 20190220
  Transmission Date: 20190418
  Serious: No
  Sender: FDA-Public Use
  Company Number: US-ELI_LILLY_AND_COMPANY-US201902004837

PATIENT
  Age: 69 Year
  Sex: Female

DRUGS (2)
  1. HUMATROPE [Suspect]
     Active Substance: SOMATROPIN
     Indication: PITUITARY TUMOUR
     Dosage: 12 MG, UNKNOWN
     Route: 058
     Dates: start: 2004
  2. SYNTHROID [Concomitant]
     Active Substance: LEVOTHYROXINE SODIUM
     Indication: PITUITARY TUMOUR
     Dosage: 0.1 MG, UNKNOWN
     Route: 065
     Dates: start: 1987

REACTIONS (1)
  - Insulin-like growth factor decreased [Unknown]

NARRATIVE: CASE EVENT DATE: 20190111
